FAERS Safety Report 6142641-X (Version None)
Quarter: 2009Q2

REPORT INFORMATION
  Report Type: 
  Country: None (occurrence: None)
  Receive Date: 20090402
  Receipt Date: 20090402
  Transmission Date: 20091009
  Serious: Yes (Hospitalization)
  Sender: FDA-Public Use
  Company Number: None

PATIENT
  Age: 87 Year
  Sex: Male

DRUGS (2)
  1. CLOPIDOGREL [Suspect]
     Indication: CEREBROVASCULAR DISORDER
     Dosage: 75 MG EVERY DAY PO
     Route: 048
     Dates: start: 20081120, end: 20081220
  2. INDOMETHACIN [Suspect]
     Indication: GOUT
     Dosage: 25 MG TID PO
     Route: 048
     Dates: start: 20081204, end: 20081214

REACTIONS (2)
  - GASTRIC HAEMORRHAGE [None]
  - RECTAL HAEMORRHAGE [None]
